FAERS Safety Report 5672928-6 (Version None)
Quarter: 2008Q1

REPORT INFORMATION
  Report Type: 
  Country: None (occurrence: None)
  Receive Date: 20080319
  Receipt Date: 20080313
  Transmission Date: 20080703
  Serious: Yes (Hospitalization)
  Sender: FDA-Public Use
  Company Number: A0715272A

PATIENT
  Age: 78 Year
  Sex: Male

DRUGS (3)
  1. FLOVENT [Suspect]
     Indication: ASTHMA
     Dosage: 2SPR TWICE PER DAY
     Route: 055
     Dates: start: 19980101
  2. WARFARIN SODIUM [Concomitant]
  3. VITAMIN B-12 [Concomitant]

REACTIONS (12)
  - ALLERGIC GRANULOMATOUS ANGIITIS [None]
  - ANAEMIA [None]
  - ANOREXIA [None]
  - BRONCHITIS [None]
  - FATIGUE [None]
  - GAIT DISTURBANCE [None]
  - HYPOAESTHESIA [None]
  - IMPAIRED DRIVING ABILITY [None]
  - RASH [None]
  - WALKING AID USER [None]
  - WEIGHT DECREASED [None]
  - WHITE BLOOD CELL COUNT INCREASED [None]
